FAERS Safety Report 24061032 (Version 2)
Quarter: 2024Q3

REPORT INFORMATION
  Report Type: Spontaneous
  Country: US (occurrence: US)
  Receive Date: 20240708
  Receipt Date: 20240715
  Transmission Date: 20241016
  Serious: No
  Sender: ROCHE
  Company Number: US-ROCHE-10000015621

PATIENT
  Sex: Male

DRUGS (11)
  1. ERIVEDGE [Suspect]
     Active Substance: VISMODEGIB
     Indication: Skin cancer
     Route: 048
  2. AMLODIPINE [Concomitant]
     Active Substance: AMLODIPINE BESYLATE
  3. ATORVASTATIN [Concomitant]
     Active Substance: ATORVASTATIN
  4. CYCLOSPORINE [Concomitant]
     Active Substance: CYCLOSPORINE
  5. ELIQUIS [Concomitant]
     Active Substance: APIXABAN
  6. LEVOTHYROXINE [Concomitant]
     Active Substance: LEVOTHYROXINE\LEVOTHYROXINE SODIUM
  7. MIRTAZAPINE [Concomitant]
     Active Substance: MIRTAZAPINE
  8. MULTAQ [Concomitant]
     Active Substance: DRONEDARONE
  9. MUPIROCIN [Concomitant]
     Active Substance: MUPIROCIN
  10. NOCDURNA [Concomitant]
     Active Substance: DESMOPRESSIN ACETATE
     Route: 058
  11. TRAMADOL HCL [Concomitant]
     Active Substance: TRAMADOL HYDROCHLORIDE

REACTIONS (3)
  - Ageusia [Recovered/Resolved]
  - Alopecia [Not Recovered/Not Resolved]
  - Weight decreased [Not Recovered/Not Resolved]
